FAERS Safety Report 14171024 (Version 4)
Quarter: 2019Q3

REPORT INFORMATION
  Report Type: Spontaneous
  Country: US (occurrence: US)
  Receive Date: 20171108
  Receipt Date: 20190711
  Transmission Date: 20191004
  Serious: No
  Sender: FDA-Public Use
  Company Number: US-PFIZER INC-2017476290

PATIENT
  Age: 66 Year
  Sex: Female

DRUGS (5)
  1. LOSARTAN. [Concomitant]
     Active Substance: LOSARTAN
     Indication: BLOOD PRESSURE ABNORMAL
     Dosage: 25 MG, 1X/DAY
     Dates: start: 2012
  2. GABAPENTIN. [Suspect]
     Active Substance: GABAPENTIN
     Indication: ARTHRITIS
     Dosage: 100 MG, 3X/DAY
     Dates: start: 2016
  3. GABAPENTIN. [Suspect]
     Active Substance: GABAPENTIN
     Indication: SCIATICA
  4. GABAPENTIN. [Suspect]
     Active Substance: GABAPENTIN
     Indication: FIBROMYALGIA
  5. GABAPENTIN. [Suspect]
     Active Substance: GABAPENTIN
     Indication: SCOLIOSIS

REACTIONS (5)
  - Drug hypersensitivity [Not Recovered/Not Resolved]
  - Off label use [Unknown]
  - Product use in unapproved indication [Unknown]
  - Irritability [Unknown]
  - Tinnitus [Unknown]

NARRATIVE: CASE EVENT DATE: 2016
